FAERS Safety Report 8053633-8 (Version None)
Quarter: 2012Q1

REPORT INFORMATION
  Report Type: 
  Country: None (occurrence: None)
  Receive Date: 20120118
  Receipt Date: 20120109
  Transmission Date: 20120608
  Serious: Yes (Hospitalization)
  Sender: FDA-Public Use
  Company Number: US-BAYER-201027027NA

PATIENT
  Age: 31 Year
  Sex: Female
  Weight: 77.098 kg

DRUGS (5)
  1. YASMIN [Suspect]
     Dosage: UNK
     Dates: start: 20061012, end: 20061101
  2. YASMIN [Suspect]
     Dosage: UNK
     Dates: start: 20061214, end: 20080701
  3. DROSPIRENONE AND ETHINYL ESTRADIOL [Suspect]
     Indication: ENDOMETRIOSIS
     Dosage: UNK
     Route: 048
     Dates: start: 20080728, end: 20091101
  4. YASMIN [Suspect]
     Indication: ENDOMETRIOSIS
     Dosage: UNK
     Route: 048
     Dates: start: 20050726, end: 20060601
  5. METFORMIN HCL [Concomitant]
     Dosage: 500 MG, UNK

REACTIONS (7)
  - TRANSVERSE SINUS THROMBOSIS [None]
  - DEEP VEIN THROMBOSIS [None]
  - DIPLOPIA [None]
  - PAIN [None]
  - DEPRESSED MOOD [None]
  - HEADACHE [None]
  - STRESS [None]
